FAERS Safety Report 14583732 (Version 1)
Quarter: 2018Q1

REPORT INFORMATION
  Report Type: Spontaneous
  Country: US (occurrence: US)
  Receive Date: 20180227
  Receipt Date: 20180227
  Transmission Date: 20180509
  Serious: Yes (Disabling, Other)
  Sender: FDA-Public Use
  Company Number: None

PATIENT
  Age: 29 Year
  Sex: Female
  Weight: 51.75 kg

DRUGS (1)
  1. MACROBID [Suspect]
     Active Substance: NITROFURANTOIN\NITROFURANTOIN MONOHYDRATE
     Indication: URINARY TRACT INFECTION
     Dosage: ?          QUANTITY:10 CAPSULE(S);?
     Route: 048
     Dates: start: 20171223, end: 20171228

REACTIONS (13)
  - Constipation [None]
  - Night sweats [None]
  - Vertigo [None]
  - Chills [None]
  - Peripheral coldness [None]
  - Gastrointestinal disorder [None]
  - Anxiety [None]
  - Dry mouth [None]
  - Arthralgia [None]
  - Paraesthesia [None]
  - Headache [None]
  - Fatigue [None]
  - Vitreous floaters [None]

NARRATIVE: CASE EVENT DATE: 20180101
